FAERS Safety Report 5706053-2 (Version None)
Quarter: 2008Q2

REPORT INFORMATION
  Report Type: 
  Country: None (occurrence: None)
  Receive Date: 20080415
  Receipt Date: 20080410
  Transmission Date: 20081010
  Serious: Yes (Life-Threatening, Hospitalization)
  Sender: FDA-Public Use
  Company Number: FR-WYE-G01385108

PATIENT
  Age: 60 Year
  Sex: Male

DRUGS (4)
  1. TORISEL [Suspect]
     Indication: RENAL CELL CARCINOMA
     Dosage: ABOUT 25 MG 1 TIME WEEKLY
     Route: 042
     Dates: start: 20080301, end: 20080301
  2. TORISEL [Suspect]
     Dosage: ABOUT 20 MG 1 TIME WEEKLY
     Route: 042
     Dates: start: 20080301, end: 20080301
  3. TORISEL [Suspect]
     Dosage: ABOUT 25 MG 1 TIME WEEKLY
     Route: 042
     Dates: start: 20080401
  4. ANALGESICS [Concomitant]
     Dosage: UNKNOWN

REACTIONS (4)
  - DIABETIC HYPEROSMOLAR COMA [None]
  - LYMPHOEDEMA [None]
  - THROMBOCYTOPENIA [None]
  - TYPE 1 DIABETES MELLITUS [None]
